FAERS Safety Report 12837705 (Version 1)
Quarter: 2016Q4

REPORT INFORMATION
  Report Type: Report from Study
  Country: US (occurrence: US)
  Receive Date: 20161012
  Receipt Date: 20161012
  Transmission Date: 20170207
  Serious: No
  Sender: FDA-Public Use
  Company Number: US-JNJFOC-20160926460

PATIENT
  Sex: Male

DRUGS (2)
  1. INVOKANA [Suspect]
     Active Substance: CANAGLIFLOZIN
     Indication: PRODUCT USED FOR UNKNOWN INDICATION
     Route: 048
  2. INVOKAMET [Suspect]
     Active Substance: CANAGLIFLOZIN\METFORMIN HYDROCHLORIDE
     Indication: DIABETES MELLITUS
     Dosage: DOSE: 150/1000 MG, STARTED ABOUT TWO TO THREE MONTHS AGO
     Route: 048
     Dates: start: 2016

REACTIONS (10)
  - Pruritus [Unknown]
  - Exostosis [Recovering/Resolving]
  - Weight decreased [Not Recovered/Not Resolved]
  - Erythema [Not Recovered/Not Resolved]
  - Peripheral swelling [Recovering/Resolving]
  - Musculoskeletal discomfort [Not Recovered/Not Resolved]
  - Psoriasis [Recovering/Resolving]
  - Dermatitis [Not Recovered/Not Resolved]
  - Hypoacusis [Unknown]
  - Blister [Recovering/Resolving]

NARRATIVE: CASE EVENT DATE: 2016
